FAERS Safety Report 9672104 (Version 1)
Quarter: 2013Q4

REPORT INFORMATION
  Report Type: Spontaneous
  Country: FR (occurrence: FR)
  Receive Date: 20131106
  Receipt Date: 20131106
  Transmission Date: 20140711
  Serious: Yes (Hospitalization, Congenital Anomaly)
  Sender: FDA-Public Use
  Company Number: FR-JNJFOC-20131015629

PATIENT
  Age: 0 Day
  Sex: Male
  Weight: 2.37 kg

DRUGS (5)
  1. RISPERDAL [Suspect]
     Indication: BIPOLAR DISORDER
     Route: 064
     Dates: end: 20130509
  2. EPITOMAX [Suspect]
     Indication: HEADACHE
     Route: 064
  3. LITHIUM CARBONATE [Suspect]
     Indication: BIPOLAR DISORDER
     Route: 064
  4. LARGACTIL [Suspect]
     Indication: BIPOLAR DISORDER
     Route: 064
  5. DIHYDROERGOTAMINE [Suspect]
     Indication: PRODUCT USED FOR UNKNOWN INDICATION
     Dosage: AT 7 AMENORRHEA WEEKS
     Route: 064

REACTIONS (4)
  - Ebstein^s anomaly [Recovering/Resolving]
  - Drug withdrawal syndrome neonatal [Unknown]
  - Agitation neonatal [Unknown]
  - Foetal exposure during pregnancy [Recovered/Resolved]
